FAERS Safety Report 13334539 (Version 1)
Quarter: 2017Q1

REPORT INFORMATION
  Report Type: Spontaneous
  Country: US (occurrence: US)
  Receive Date: 20170314
  Receipt Date: 20170314
  Transmission Date: 20170428
  Serious: No
  Sender: FDA-Public Use
  Company Number: US-JNJFOC-20170224419

PATIENT
  Age: 78 Year
  Sex: Female

DRUGS (7)
  1. VITAMIN B12 [Concomitant]
     Active Substance: CYANOCOBALAMIN
  2. IMBRUVICA [Suspect]
     Active Substance: IBRUTINIB
     Indication: PRODUCT USED FOR UNKNOWN INDICATION
     Route: 048
     Dates: start: 20170118
  3. BENADRYL [Concomitant]
     Active Substance: DIPHENHYDRAMINE HYDROCHLORIDE
  4. NAPROXEN. [Concomitant]
     Active Substance: NAPROXEN
  5. VITAMIN D3 [Concomitant]
     Active Substance: CHOLECALCIFEROL
  6. CARVEDILOL. [Concomitant]
     Active Substance: CARVEDILOL
  7. BIOTIN [Concomitant]
     Active Substance: BIOTIN

REACTIONS (1)
  - Drug dose omission [Unknown]

NARRATIVE: CASE EVENT DATE: 20170217
